FAERS Safety Report 7915183-6 (Version None)
Quarter: 2011Q4

REPORT INFORMATION
  Report Type: 
  Country: None (occurrence: None)
  Receive Date: 20111115
  Receipt Date: 20111109
  Transmission Date: 20120403
  Serious: Yes (Other)
  Sender: FDA-Public Use
  Company Number: BR-JNJFOC-20111104443

PATIENT
  Sex: Female

DRUGS (2)
  1. REMICADE [Suspect]
     Indication: PSORIASIS
     Dosage: DURATION OF INFLIXIMAB THERAPY WAS 3 YEARS (DATES UNSPECIFIED)
     Route: 042
  2. REMICADE [Suspect]
     Indication: PSORIATIC ARTHROPATHY
     Dosage: DURATION OF INFLIXIMAB THERAPY WAS 3 YEARS (DATES UNSPECIFIED)
     Route: 042

REACTIONS (2)
  - BREAST CANCER [None]
  - DRUG INEFFECTIVE [None]
